FAERS Safety Report 7995734-6 (Version None)
Quarter: 2011Q4

REPORT INFORMATION
  Report Type: 
  Country: None (occurrence: None)
  Receive Date: 20111220
  Receipt Date: 20111214
  Transmission Date: 20120403
  Serious: Yes (Other)
  Sender: FDA-Public Use
  Company Number: AT-ABBOTT-11P-009-0883368-00

PATIENT
  Sex: Male

DRUGS (1)
  1. HUMIRA [Suspect]
     Indication: CROHN'S DISEASE

REACTIONS (8)
  - INTESTINAL FISTULA [None]
  - ACUTE ABDOMEN [None]
  - FAECAL CALPROTECTIN [None]
  - MESENTERIC LYMPHADENOPATHY [None]
  - ENTEROCOLONIC FISTULA [None]
  - ENTERITIS [None]
  - INTESTINAL PERFORATION [None]
  - ABSCESS INTESTINAL [None]
